FAERS Safety Report 17150011 (Version 7)
Quarter: 2021Q2

REPORT INFORMATION
  Report Type: Report from Study
  Country: US (occurrence: US)
  Receive Date: 20191213
  Receipt Date: 20210512
  Transmission Date: 20210716
  Serious: Yes (Hospitalization, Other)
  Sender: FDA-Public Use
  Company Number: US-ROCHE-2152578

PATIENT
  Age: 45 Year
  Sex: Female
  Weight: 76 kg

DRUGS (82)
  1. ATEZOLIZUMAB. [Suspect]
     Active Substance: ATEZOLIZUMAB
     Route: 042
     Dates: start: 20180124
  2. ATEZOLIZUMAB. [Suspect]
     Active Substance: ATEZOLIZUMAB
     Route: 042
     Dates: start: 20180828
  3. ATEZOLIZUMAB. [Suspect]
     Active Substance: ATEZOLIZUMAB
     Route: 042
     Dates: start: 20180918
  4. ATEZOLIZUMAB. [Suspect]
     Active Substance: ATEZOLIZUMAB
     Route: 042
     Dates: start: 20181129
  5. ATEZOLIZUMAB. [Suspect]
     Active Substance: ATEZOLIZUMAB
     Route: 042
     Dates: start: 20190530
  6. ATEZOLIZUMAB. [Suspect]
     Active Substance: ATEZOLIZUMAB
     Route: 042
     Dates: start: 20190912
  7. ATENOLOL. [Concomitant]
     Active Substance: ATENOLOL
  8. AZELASTINE. [Concomitant]
     Active Substance: AZELASTINE HYDROCHLORIDE
  9. CYCLOBENZAPRINE. [Concomitant]
     Active Substance: CYCLOBENZAPRINE
  10. DOXEPIN [Concomitant]
     Active Substance: DOXEPIN
  11. LIDOCAINE. [Concomitant]
     Active Substance: LIDOCAINE
  12. OLOPATADINE. [Concomitant]
     Active Substance: OLOPATADINE
  13. TRAZODONE [Concomitant]
     Active Substance: TRAZODONE HYDROCHLORIDE
  14. TORSEMIDE. [Concomitant]
     Active Substance: TORSEMIDE
  15. NAVELBINE [Concomitant]
     Active Substance: VINORELBINE TARTRATE
     Dates: start: 201501, end: 201708
  16. ATEZOLIZUMAB. [Suspect]
     Active Substance: ATEZOLIZUMAB
     Route: 042
     Dates: start: 20180529
  17. ATEZOLIZUMAB. [Suspect]
     Active Substance: ATEZOLIZUMAB
     Route: 042
     Dates: start: 20180104
  18. ATEZOLIZUMAB. [Suspect]
     Active Substance: ATEZOLIZUMAB
     Route: 042
     Dates: start: 20190215
  19. ATEZOLIZUMAB. [Suspect]
     Active Substance: ATEZOLIZUMAB
     Route: 042
     Dates: start: 20190329
  20. ATEZOLIZUMAB. [Suspect]
     Active Substance: ATEZOLIZUMAB
     Route: 042
     Dates: start: 20200305
  21. OXYBUTYNIN. [Concomitant]
     Active Substance: OXYBUTYNIN CHLORIDE
  22. RANITIDINE. [Concomitant]
     Active Substance: RANITIDINE
  23. CYTOXAN [Concomitant]
     Active Substance: CYCLOPHOSPHAMIDE
     Dates: start: 201501, end: 201708
  24. VINCRISTINE [Concomitant]
     Active Substance: VINCRISTINE
     Dates: start: 201501, end: 201708
  25. PROPOFOL. [Concomitant]
     Active Substance: PROPOFOL
  26. ATEZOLIZUMAB. [Suspect]
     Active Substance: ATEZOLIZUMAB
     Route: 042
     Dates: start: 20180328
  27. ATEZOLIZUMAB. [Suspect]
     Active Substance: ATEZOLIZUMAB
     Route: 042
     Dates: start: 20180418
  28. ACETAMINOPHEN. [Concomitant]
     Active Substance: ACETAMINOPHEN
  29. FEXOFENADINE [Concomitant]
     Active Substance: FEXOFENADINE HYDROCHLORIDE
  30. CHOLECALCIFEROL [Concomitant]
     Active Substance: CHOLECALCIFEROL
  31. HYDROCORTISONE. [Concomitant]
     Active Substance: HYDROCORTISONE
  32. CISPLATIN. [Concomitant]
     Active Substance: CISPLATIN
     Dates: start: 201501, end: 201708
  33. ATEZOLIZUMAB. [Suspect]
     Active Substance: ATEZOLIZUMAB
     Route: 042
     Dates: start: 20180209
  34. ATEZOLIZUMAB. [Suspect]
     Active Substance: ATEZOLIZUMAB
     Route: 042
     Dates: start: 20180625
  35. ATEZOLIZUMAB. [Suspect]
     Active Substance: ATEZOLIZUMAB
     Route: 042
     Dates: start: 20180807
  36. ATEZOLIZUMAB. [Suspect]
     Active Substance: ATEZOLIZUMAB
     Route: 042
     Dates: start: 20181009
  37. ATEZOLIZUMAB. [Suspect]
     Active Substance: ATEZOLIZUMAB
     Route: 042
     Dates: start: 20181030
  38. ATEZOLIZUMAB. [Suspect]
     Active Substance: ATEZOLIZUMAB
     Route: 042
     Dates: start: 20200416
  39. ADVIL [Concomitant]
     Active Substance: IBUPROFEN
  40. OXYCODONE [Concomitant]
     Active Substance: OXYCODONE
  41. OXYGEN. [Concomitant]
     Active Substance: OXYGEN
  42. ALPRAZOLAM. [Concomitant]
     Active Substance: ALPRAZOLAM
  43. DULOXETINE. [Concomitant]
     Active Substance: DULOXETINE
  44. FLUTICASONE. [Concomitant]
     Active Substance: FLUTICASONE
  45. GEMFIBROZIL. [Concomitant]
     Active Substance: GEMFIBROZIL
  46. MOMETASONE [Concomitant]
     Active Substance: MOMETASONE
  47. MONTELUKAST [Concomitant]
     Active Substance: MONTELUKAST SODIUM
  48. ATEZOLIZUMAB. [Suspect]
     Active Substance: ATEZOLIZUMAB
     Indication: ALVEOLAR SOFT PART SARCOMA
     Dosage: PATIENTS RECEIVE ATEZOLIZUMAB IV OVER 60 MINUTES ON DAY 1. COURSES REPEAT EVERY 21 DAYS IN THE ABSEN
     Route: 042
     Dates: start: 20171211
  49. ATEZOLIZUMAB. [Suspect]
     Active Substance: ATEZOLIZUMAB
     Route: 042
     Dates: start: 20180103
  50. ATEZOLIZUMAB. [Suspect]
     Active Substance: ATEZOLIZUMAB
     Route: 042
     Dates: start: 20180717
  51. ATEZOLIZUMAB. [Suspect]
     Active Substance: ATEZOLIZUMAB
     Route: 042
     Dates: start: 20190308
  52. ATEZOLIZUMAB. [Suspect]
     Active Substance: ATEZOLIZUMAB
     Route: 042
     Dates: start: 20190308
  53. ATEZOLIZUMAB. [Suspect]
     Active Substance: ATEZOLIZUMAB
     Route: 042
     Dates: start: 20200416
  54. AMITIZA [Concomitant]
     Active Substance: LUBIPROSTONE
  55. PROAIR HFA [Concomitant]
     Active Substance: ALBUTEROL SULFATE
  56. LUBIPROSTONE [Concomitant]
     Active Substance: LUBIPROSTONE
  57. ESZOPICLONE. [Concomitant]
     Active Substance: ESZOPICLONE
  58. PREDNISONE. [Concomitant]
     Active Substance: PREDNISONE
     Route: 048
  59. ATEZOLIZUMAB. [Suspect]
     Active Substance: ATEZOLIZUMAB
     Route: 042
     Dates: start: 20180510
  60. LORAZEPAM. [Concomitant]
     Active Substance: LORAZEPAM
  61. SUNITINIB [Concomitant]
     Active Substance: SUNITINIB
  62. GEMCITABINE. [Concomitant]
     Active Substance: GEMCITABINE
     Dates: start: 201501, end: 201508
  63. ATEZOLIZUMAB. [Suspect]
     Active Substance: ATEZOLIZUMAB
     Route: 042
     Dates: start: 20180305
  64. ATEZOLIZUMAB. [Suspect]
     Active Substance: ATEZOLIZUMAB
     Route: 042
     Dates: start: 20180124
  65. ATEZOLIZUMAB. [Suspect]
     Active Substance: ATEZOLIZUMAB
     Route: 042
     Dates: start: 20191204
  66. AMBIEN [Concomitant]
     Active Substance: ZOLPIDEM TARTRATE
  67. CYMBALTA [Concomitant]
     Active Substance: DULOXETINE HYDROCHLORIDE
  68. ALBUTEROL. [Concomitant]
     Active Substance: ALBUTEROL
     Indication: WHEEZING
  69. BETAMETHASONE. [Concomitant]
     Active Substance: BETAMETHASONE
  70. BUDESONIDE;FORMOTEROL [Concomitant]
     Active Substance: BUDESONIDE\FORMOTEROL
  71. FORMOTEROL [Concomitant]
     Active Substance: FORMOTEROL
  72. IPRATROPIUM [Concomitant]
     Active Substance: IPRATROPIUM
  73. PREGABALIN. [Concomitant]
     Active Substance: PREGABALIN
  74. SENNOSIDE [Concomitant]
     Active Substance: SENNOSIDES
  75. ATEZOLIZUMAB. [Suspect]
     Active Substance: ATEZOLIZUMAB
     Route: 042
     Dates: start: 20190215
  76. GLUCOSAMINE [Concomitant]
     Active Substance: GLUCOSAMINE
  77. LYRICA [Concomitant]
     Active Substance: PREGABALIN
  78. METOPROLOL. [Concomitant]
     Active Substance: METOPROLOL
  79. PILOCARPINE. [Concomitant]
     Active Substance: PILOCARPINE
  80. ADRIAMYCIN [Concomitant]
     Active Substance: DOXORUBICIN HYDROCHLORIDE
     Dates: start: 201501, end: 201708
  81. ZOMETA [Concomitant]
     Active Substance: ZOLEDRONIC ACID
     Dates: start: 201501, end: 201508
  82. TEMOZOLOMIDE. [Concomitant]
     Active Substance: TEMOZOLOMIDE
     Dates: start: 201501, end: 201708

REACTIONS (14)
  - Anaemia [Unknown]
  - Cerebrovascular accident [Recovered/Resolved]
  - Sepsis [Recovered/Resolved]
  - Activated partial thromboplastin time prolonged [Unknown]
  - Hypoxia [Unknown]
  - Anxiety [Unknown]
  - Somnolence [Unknown]
  - Mental status changes [Recovered/Resolved]
  - Pneumonitis [Unknown]
  - Urinary tract infection [Unknown]
  - Pneumonia [Unknown]
  - Hypertension [Unknown]
  - Infection [Unknown]
  - Cerebrovascular accident [Recovered/Resolved]

NARRATIVE: CASE EVENT DATE: 20171225
